FAERS Safety Report 6482497-9 (Version None)
Quarter: 2009Q4

REPORT INFORMATION
  Report Type: 
  Country: None (occurrence: None)
  Receive Date: 20091208
  Receipt Date: 20090911
  Transmission Date: 20100525
  Serious: No
  Sender: FDA-Public Use
  Company Number: US-AMGEN-TCS364418

PATIENT
  Sex: Male

DRUGS (2)
  1. ENBREL [Suspect]
     Indication: DRUG USE FOR UNKNOWN INDICATION
     Route: 058
  2. METHOTREXATE [Concomitant]

REACTIONS (2)
  - HEADACHE [None]
  - MEMORY IMPAIRMENT [None]
